FAERS Safety Report 7699521-8 (Version None)
Quarter: 2011Q3

REPORT INFORMATION
  Report Type: 
  Country: None (occurrence: None)
  Receive Date: 20110820
  Receipt Date: 20110708
  Transmission Date: 20111222
  Serious: No
  Sender: FDA-Public Use
  Company Number: US-ALLERGAN-1109230US

PATIENT
  Age: 55 Year
  Sex: Female

DRUGS (4)
  1. SANCTURA XR [Suspect]
     Indication: HYPERTONIC BLADDER
     Dosage: 60 MG, QD
     Route: 048
     Dates: start: 20110401, end: 20110706
  2. NUEDEXTA [Suspect]
     Indication: DEPRESSION
  3. GILENYA [Suspect]
     Indication: MULTIPLE SCLEROSIS
  4. LISINOPRIL [Concomitant]
     Indication: BLOOD PRESSURE

REACTIONS (1)
  - HEADACHE [None]
